FAERS Safety Report 9714700 (Version 2)
Quarter: 2015Q1

REPORT INFORMATION
  Report Type: Other
  Country: DK (occurrence: DK)
  Receive Date: 20131126
  Receipt Date: 20150216
  Transmission Date: 20150721
  Serious: Yes (Life-Threatening, Hospitalization)
  Sender: FDA-Public Use
  Company Number: DK-MYLANLABS-2013S1025830

PATIENT

DRUGS (6)
  1. LOSARTAN [Concomitant]
     Active Substance: LOSARTAN
     Indication: HYPERTENSION
     Dosage: UNK
     Dates: start: 2012
  2. SOTALOL. [Suspect]
     Active Substance: SOTALOL
     Indication: HYPERTENSION
     Dosage: DOSIS: 1 TABLET MORGEN OG 1/2 TABLET AFTEN. STYRKE: 160 MG
     Dates: start: 1983, end: 20131024
  3. QUININE [Concomitant]
     Active Substance: QUININE
     Indication: MUSCLE SPASMS
     Dosage: UNK
     Dates: start: 201211
  4. SPARKAL [Concomitant]
     Active Substance: AMILORIDE HYDROCHLORIDE
     Indication: HYPERTENSION
     Dosage: TABL DAGLIG, STYRKE: 50 + 5 MG
     Route: 048
     Dates: start: 2011
  5. AMILORIDE HCL,HYDROCHLOROTHIAZIDE [Interacting]
     Active Substance: AMILORIDE HYDROCHLORIDE\HYDROCHLOROTHIAZIDE
     Indication: HYPERTENSION
     Dosage: 1 UNK,QD
     Dates: start: 2011
  6. SIMVASTATIN. [Concomitant]
     Active Substance: SIMVASTATIN
     Indication: HYPERCHOLESTEROLAEMIA
     Dosage: UNK
     Dates: start: 2011

REACTIONS (3)
  - Electrocardiogram QT prolonged [Recovered/Resolved]
  - Syncope [Recovered/Resolved]
  - Drug interaction [Unknown]

NARRATIVE: CASE EVENT DATE: 20131024
